FAERS Safety Report 9140918 (Version 1)
Quarter: 2013Q1

REPORT INFORMATION
  Report Type: Spontaneous
  Country: BR (occurrence: BR)
  Receive Date: 20130305
  Receipt Date: 20130305
  Transmission Date: 20140127
  Serious: Yes (Other)
  Sender: FDA-Public Use
  Company Number: BR-PFIZER INC-2013070745

PATIENT
  Age: 73 Year
  Sex: Female
  Weight: 42 kg

DRUGS (1)
  1. CELEBRA [Suspect]
     Dosage: 200MG IN THE MORNING AND 400MG AT NIGHT
     Route: 048
     Dates: start: 20100226, end: 201005

REACTIONS (7)
  - Accident [Unknown]
  - Ankle fracture [Unknown]
  - Bedridden [Unknown]
  - Thermal burn [Unknown]
  - Rheumatic disorder [Unknown]
  - Osteoarthritis [Unknown]
  - Pain [Unknown]
